FAERS Safety Report 5071622-2 (Version None)
Quarter: 2006Q3

REPORT INFORMATION
  Report Type: 
  Country: None (occurrence: None)
  Receive Date: 20060804
  Receipt Date: 20060327
  Transmission Date: 20061208
  Serious: Yes (Death, Hospitalization)
  Sender: FDA-Public Use
  Company Number: DK-MERCK-0603DNK00017

PATIENT
  Age: 66 Year
  Sex: Female

DRUGS (6)
  1. CANCIDAS [Suspect]
     Indication: FUNGAL SEPSIS
     Route: 041
  2. CANCIDAS [Suspect]
     Route: 041
  3. AMPHOTERICIN B [Concomitant]
     Indication: FUNGAL SEPSIS
     Route: 048
  4. VORICONAZOLE [Concomitant]
     Route: 048
  5. CEFUROXIME [Concomitant]
     Route: 065
  6. TOBRAMYCIN [Concomitant]
     Route: 065

REACTIONS (4)
  - HEPATIC NECROSIS [None]
  - MULTI-ORGAN FAILURE [None]
  - SHOCK [None]
  - THERAPY NON-RESPONDER [None]
